FAERS Safety Report 6038132-7 (Version None)
Quarter: 2009Q1

REPORT INFORMATION
  Report Type: 
  Country: None (occurrence: None)
  Receive Date: 20090113
  Receipt Date: 20090113
  Transmission Date: 20090719
  Serious: Yes (Hospitalization)
  Sender: FDA-Public Use
  Company Number: None

PATIENT
  Age: 77 Year
  Sex: Male
  Weight: 97.5234 kg

DRUGS (13)
  1. REMICADE [Suspect]
     Indication: CROHN'S DISEASE
     Dosage: IV DRIP
     Route: 041
     Dates: start: 20080312, end: 20080312
  2. REMICADE [Suspect]
     Indication: CROHN'S DISEASE
     Dosage: IV DRIP
     Route: 041
     Dates: start: 20080409, end: 20080409
  3. ISOSORB [Concomitant]
  4. WARFARIN SODIUM [Concomitant]
  5. LISINOPRIL [Concomitant]
  6. SOTALOL HCL [Concomitant]
  7. DIPHEN/ATROP [Concomitant]
  8. ASPIRIN [Concomitant]
  9. METRONIDAZOLE [Concomitant]
  10. PRAVASTATIN [Concomitant]
  11. CYANOCOBALAMIN [Concomitant]
  12. MULTI-VITAMINS [Concomitant]
  13. TART CHERRY + OMEGA 3 FISH OIL [Concomitant]

REACTIONS (8)
  - BLOOD PRESSURE INCREASED [None]
  - CHILLS [None]
  - DYSPNOEA [None]
  - ERYTHEMA [None]
  - MALAISE [None]
  - PYREXIA [None]
  - RASH [None]
  - SWELLING FACE [None]
